FAERS Safety Report 10010108 (Version 2)
Quarter: 2014Q1

REPORT INFORMATION
  Report Type: Spontaneous
  Country: US (occurrence: US)
  Receive Date: 20140312
  Receipt Date: 20140312
  Transmission Date: 20141002
  Serious: No
  Sender: FDA-Public Use
  Company Number: US-INCYTE CORPORATION-2013IN001040

PATIENT
  Age: 52 Year
  Sex: Male
  Weight: 102.4 kg

DRUGS (6)
  1. JAKAFI [Suspect]
     Indication: MYELOFIBROSIS
     Dosage: 10 MG, BID
     Route: 048
     Dates: start: 20130307, end: 201305
  2. JAKAFI [Suspect]
     Dosage: 5 MG, BID
     Route: 048
     Dates: start: 201305
  3. ASPIRIN [Concomitant]
     Dosage: 81 MG, UNK
  4. FOLIC ACID [Concomitant]
  5. LORATADINE [Concomitant]
  6. MIRTAZAPINE [Concomitant]

REACTIONS (3)
  - Fatigue [Unknown]
  - Red blood cell count decreased [Unknown]
  - Haemoglobin decreased [Recovering/Resolving]
